FAERS Safety Report 13681214 (Version 1)
Quarter: 2017Q2

REPORT INFORMATION
  Report Type: Spontaneous
  Country: ES (occurrence: ES)
  Receive Date: 20170623
  Receipt Date: 20170623
  Transmission Date: 20170830
  Serious: Yes (Other)
  Sender: FDA-Public Use
  Company Number: ES-AUROBINDO-AUR-APL-2017-10974

PATIENT
  Age: 18 Year
  Sex: Female

DRUGS (2)
  1. PARACETAMOL [Suspect]
     Active Substance: ACETAMINOPHEN
     Indication: NASOPHARYNGITIS
     Dosage: 1 G, UNK
  2. IBUPROFEN. [Suspect]
     Active Substance: IBUPROFEN
     Indication: NASOPHARYNGITIS
     Dosage: 600 MG, UNK

REACTIONS (6)
  - Asthma [Recovering/Resolving]
  - Nasal polyps [Recovered/Resolved]
  - Viral upper respiratory tract infection [Recovered/Resolved]
  - Bronchospasm [Recovered/Resolved]
  - Rhinitis [Recovering/Resolving]
  - Headache [Recovering/Resolving]
